FAERS Safety Report 13155206 (Version 1)
Quarter: 2017Q1

REPORT INFORMATION
  Report Type: Spontaneous
  Country: US (occurrence: US)
  Receive Date: 20170126
  Receipt Date: 20170126
  Transmission Date: 20170428
  Serious: No
  Sender: FDA-Public Use
  Company Number: US-TEVA-725979ACC

PATIENT
  Age: 16 Year
  Sex: Female
  Weight: 72.64 kg

DRUGS (1)
  1. PLAN B ONE-STEP [Suspect]
     Active Substance: LEVONORGESTREL
     Indication: POST COITAL CONTRACEPTION
     Dates: start: 20161218, end: 20161218

REACTIONS (5)
  - Dizziness [Recovered/Resolved]
  - Headache [Recovered/Resolved]
  - Intentional product misuse [Unknown]
  - Dysmenorrhoea [Recovered/Resolved]
  - Prescription drug used without a prescription [Unknown]

NARRATIVE: CASE EVENT DATE: 20161218
